FAERS Safety Report 5577657-5 (Version None)
Quarter: 2007Q4

REPORT INFORMATION
  Report Type: 
  Country: None (occurrence: None)
  Receive Date: 20071231
  Receipt Date: 20071225
  Transmission Date: 20080405
  Serious: Yes (Other)
  Sender: FDA-Public Use
  Company Number: PHBS2007JP21501

PATIENT

DRUGS (4)
  1. NEORAL [Suspect]
     Indication: PEMPHIGOID
     Dosage: 100 MG/D
     Route: 048
     Dates: start: 20060101, end: 20071126
  2. NEORAL [Suspect]
     Dosage: 150 MG/D
     Route: 048
     Dates: start: 20071126, end: 20071203
  3. NEORAL [Suspect]
     Dosage: 200 MG/D
     Route: 048
     Dates: start: 20071203
  4. STEROIDS NOS [Concomitant]
     Indication: PEMPHIGOID
     Dosage: UNK, UNK
     Dates: start: 20060101

REACTIONS (4)
  - BLOOD SODIUM DECREASED [None]
  - DISEASE PROGRESSION [None]
  - HYPONATRAEMIA [None]
  - INAPPROPRIATE ANTIDIURETIC HORMONE SECRETION [None]
